FAERS Safety Report 8537868-3 (Version None)
Quarter: 2012Q3

REPORT INFORMATION
  Report Type: 
  Country: None (occurrence: None)
  Receive Date: 20120725
  Receipt Date: 20120716
  Transmission Date: 20120928
  Serious: Yes (Hospitalization)
  Sender: FDA-Public Use
  Company Number: US-GLAXOSMITHKLINE-A0817820A

PATIENT
  Age: 46 Year
  Sex: Male
  Weight: 113.6 kg

DRUGS (1)
  1. AVANDIA [Suspect]
     Indication: DIABETES MELLITUS
     Dosage: 8MG PER DAY
     Route: 048
     Dates: end: 20070601

REACTIONS (4)
  - MYOCARDIAL INFARCTION [None]
  - CONDITION AGGRAVATED [None]
  - OESOPHAGEAL STENOSIS [None]
  - DYSPNOEA [None]
